FAERS Safety Report 6100716-5 (Version None)
Quarter: 2009Q1

REPORT INFORMATION
  Report Type: 
  Country: None (occurrence: None)
  Receive Date: 20090303
  Receipt Date: 20090223
  Transmission Date: 20090719
  Serious: Yes (Hospitalization)
  Sender: FDA-Public Use
  Company Number: PHEH2009US01993

PATIENT
  Sex: Female
  Weight: 59.41 kg

DRUGS (8)
  1. RECLAST [Suspect]
     Indication: OSTEOPOROSIS
     Dosage: 5 MG, X 1 ONLY
     Route: 042
     Dates: start: 20090204
  2. COUMADIN [Concomitant]
     Dosage: 13MGMWF/14MGS/S/T/TH
     Route: 048
  3. M.V.I. [Concomitant]
     Dosage: 500 UNK, QD
     Route: 048
  4. ASCORBIC ACID [Concomitant]
     Dosage: 500 MG, QD
     Route: 048
  5. LOVAZA [Concomitant]
     Dosage: 1000 (ONE),  QD
     Route: 048
  6. FOLIC ACID [Concomitant]
     Dosage: ONE, QD
     Route: 048
  7. DOCUSATE SODIUM [Concomitant]
     Dosage: 100 (ONE), BID
     Route: 048
  8. CITRACAL + D [Concomitant]
     Dosage: ONE, BID
     Route: 048
     Dates: start: 20090101

REACTIONS (2)
  - RECTAL HAEMORRHAGE [None]
  - TRANSFUSION [None]
